FAERS Safety Report 9286129 (Version 3)
Quarter: 2013Q3

REPORT INFORMATION
  Report Type: Spontaneous
  Country: CA (occurrence: CA)
  Receive Date: 20130513
  Receipt Date: 20130730
  Transmission Date: 20140515
  Serious: Yes (Other)
  Sender: FDA-Public Use
  Company Number: CA-GLAXOSMITHKLINE-A1016573A

PATIENT
  Sex: Female
  Weight: 67 kg

DRUGS (12)
  1. BENLYSTA [Suspect]
     Indication: SYSTEMIC LUPUS ERYTHEMATOSUS
     Dosage: 660MG SEE DOSAGE TEXT
     Route: 042
     Dates: start: 20130212
  2. PLAQUENIL [Concomitant]
     Indication: SYSTEMIC LUPUS ERYTHEMATOSUS
     Dosage: 400MG PER DAY
  3. PREDNISONE [Concomitant]
     Indication: SYSTEMIC LUPUS ERYTHEMATOSUS
     Dosage: 20MG PER DAY
  4. AZATHIOPRINE [Concomitant]
     Indication: SYSTEMIC LUPUS ERYTHEMATOSUS
     Dosage: 200MG PER DAY
  5. BENADRYL [Concomitant]
     Indication: PREMEDICATION
     Dosage: 25MG EVERY TWO WEEKS
     Route: 048
     Dates: start: 20130212
  6. TYLENOL [Concomitant]
     Indication: PREMEDICATION
     Dosage: 650MG EVERY TWO WEEKS
     Route: 048
     Dates: start: 20130212
  7. ASA [Concomitant]
     Indication: SYSTEMIC LUPUS ERYTHEMATOSUS
     Dosage: 81MG UNKNOWN
  8. FOLATE [Concomitant]
     Indication: PRODUCT USED FOR UNKNOWN INDICATION
  9. ANTI MALARIALS [Concomitant]
     Indication: PRODUCT USED FOR UNKNOWN INDICATION
  10. HEPARIN [Concomitant]
     Indication: PRODUCT USED FOR UNKNOWN INDICATION
  11. ALCOHOL [Concomitant]
     Dates: end: 20130321
  12. TOBACCO [Concomitant]
     Dates: start: 20130321

REACTIONS (2)
  - Abortion spontaneous [Unknown]
  - Exposure during pregnancy [Unknown]
